FAERS Safety Report 7291330-7 (Version None)
Quarter: 2011Q1

REPORT INFORMATION
  Report Type: 
  Country: None (occurrence: None)
  Receive Date: 20110214
  Receipt Date: 20110209
  Transmission Date: 20110831
  Serious: No
  Sender: FDA-Public Use
  Company Number: A0889960A

PATIENT
  Age: 53 Year
  Sex: Female
  Weight: 100.5 kg

DRUGS (9)
  1. ADVAIR DISKUS 100/50 [Suspect]
     Indication: ASTHMA
     Dosage: 1PUFF TWICE PER DAY
     Route: 055
     Dates: start: 20100202, end: 20101101
  2. CLARITIN [Concomitant]
     Dosage: 10MG PER DAY
     Route: 048
  3. PRILOSEC [Concomitant]
     Dosage: 20MG PER DAY
  4. LISINOPRIL [Concomitant]
     Dosage: 5MG PER DAY
     Route: 048
  5. RANEXA [Concomitant]
     Dosage: 100MG TWICE PER DAY
     Route: 048
  6. ASPIRIN [Concomitant]
     Dosage: 1MG PER DAY
     Route: 048
  7. TRILIPIX [Concomitant]
     Dosage: 135MG PER DAY
     Route: 048
  8. IMDUR [Concomitant]
     Dosage: 30MG PER DAY
     Route: 048
  9. NITROGLYCERIN [Concomitant]
     Dosage: .4MG AS REQUIRED
     Route: 060

REACTIONS (2)
  - BLOOD PRESSURE SYSTOLIC DECREASED [None]
  - PRESYNCOPE [None]
